FAERS Safety Report 9710887 (Version 2)
Quarter: 2013Q4

REPORT INFORMATION
  Report Type: Spontaneous
  Country: US (occurrence: US)
  Receive Date: 20131126
  Receipt Date: 20131126
  Transmission Date: 20140711
  Serious: No
  Sender: FDA-Public Use
  Company Number: US201209001369

PATIENT
  Age: 74 Year
  Sex: Male
  Weight: 108.84 kg

DRUGS (3)
  1. BYDUREON 2MG VIAL + SYRINGE [Suspect]
     Indication: TYPE 2 DIABETES MELLITUS
     Dosage: LOT NO:73069 EXPDT:JAN14
     Route: 058
     Dates: start: 201207
  2. METFORMIN HCL [Suspect]
  3. ASPIRIN [Concomitant]

REACTIONS (4)
  - Injection site nodule [Unknown]
  - Constipation [Unknown]
  - Injection site haemorrhage [Unknown]
  - Blood glucose fluctuation [Unknown]
